FAERS Safety Report 4457644-0 (Version None)
Quarter: 2004Q3

REPORT INFORMATION
  Report Type: 
  Country: None (occurrence: None)
  Receive Date: 20040922
  Receipt Date: 20040908
  Transmission Date: 20050211
  Serious: Yes (Hospitalization)
  Sender: FDA-Public Use
  Company Number: 234549K04USA

PATIENT
  Age: 34 Year
  Sex: Female

DRUGS (2)
  1. REBIF [Suspect]
     Indication: MULTIPLE SCLEROSIS RELAPSE
     Dosage: 44 MCG, 3 IN 1 WEEKS,
     Dates: start: 20040301, end: 20040628
  2. REBIF [Suspect]
     Indication: MULTIPLE SCLEROSIS RELAPSE
     Dosage: 44 MCG, 3 IN 1 WEEKS,
     Dates: start: 20040719

REACTIONS (3)
  - ESCHERICHIA INFECTION [None]
  - KIDNEY INFECTION [None]
  - URINE ODOUR ABNORMAL [None]
